FAERS Safety Report 18725698 (Version 4)
Quarter: 2023Q2

REPORT INFORMATION
  Report Type: Report from Study
  Country: CN (occurrence: CN)
  Receive Date: 20210111
  Receipt Date: 20230426
  Transmission Date: 20230722
  Serious: Yes (Hospitalization)
  Sender: FDA-Public Use
  Company Number: CN-TAKEDA-2021TUS001026

PATIENT
  Age: 32 Year
  Sex: Male
  Weight: 70 kg

DRUGS (28)
  1. ADVATE [Suspect]
     Active Substance: ANTIHEMOPHILIC FACTOR, HUMAN RECOMBINANT
     Indication: Factor VIII deficiency
     Dosage: UNK
     Route: 042
     Dates: start: 20200821
  2. ADVATE [Suspect]
     Active Substance: ANTIHEMOPHILIC FACTOR, HUMAN RECOMBINANT
     Indication: Factor VIII deficiency
     Dosage: UNK
     Route: 042
     Dates: start: 20200821
  3. ADVATE [Suspect]
     Active Substance: ANTIHEMOPHILIC FACTOR, HUMAN RECOMBINANT
     Indication: Factor VIII deficiency
     Dosage: UNK
     Route: 042
     Dates: start: 20200821
  4. ADVATE [Suspect]
     Active Substance: ANTIHEMOPHILIC FACTOR, HUMAN RECOMBINANT
     Dosage: 1000 INTERNATIONAL UNIT
     Route: 042
     Dates: start: 20210101
  5. ADVATE [Suspect]
     Active Substance: ANTIHEMOPHILIC FACTOR, HUMAN RECOMBINANT
     Dosage: 1000 INTERNATIONAL UNIT
     Route: 042
     Dates: start: 20210101
  6. ADVATE [Suspect]
     Active Substance: ANTIHEMOPHILIC FACTOR, HUMAN RECOMBINANT
     Dosage: 1000 INTERNATIONAL UNIT
     Route: 042
     Dates: start: 20210101
  7. ADVATE [Suspect]
     Active Substance: ANTIHEMOPHILIC FACTOR, HUMAN RECOMBINANT
     Dosage: 2000 INTERNATIONAL UNIT, Q8HR
     Route: 042
     Dates: start: 20210102, end: 20210103
  8. ADVATE [Suspect]
     Active Substance: ANTIHEMOPHILIC FACTOR, HUMAN RECOMBINANT
     Dosage: 2000 INTERNATIONAL UNIT, Q8HR
     Route: 042
     Dates: start: 20210102, end: 20210103
  9. ADVATE [Suspect]
     Active Substance: ANTIHEMOPHILIC FACTOR, HUMAN RECOMBINANT
     Dosage: 2000 INTERNATIONAL UNIT, Q8HR
     Route: 042
     Dates: start: 20210102, end: 20210103
  10. ADVATE [Suspect]
     Active Substance: ANTIHEMOPHILIC FACTOR, HUMAN RECOMBINANT
     Dosage: 1000 INTERNATIONAL UNIT, Q12H
     Route: 042
     Dates: start: 20210103, end: 20210105
  11. ADVATE [Suspect]
     Active Substance: ANTIHEMOPHILIC FACTOR, HUMAN RECOMBINANT
     Dosage: 1000 INTERNATIONAL UNIT, Q12H
     Route: 042
     Dates: start: 20210103, end: 20210105
  12. ADVATE [Suspect]
     Active Substance: ANTIHEMOPHILIC FACTOR, HUMAN RECOMBINANT
     Dosage: 1000 INTERNATIONAL UNIT, Q12H
     Route: 042
     Dates: start: 20210103, end: 20210105
  13. ADVATE [Suspect]
     Active Substance: ANTIHEMOPHILIC FACTOR, HUMAN RECOMBINANT
     Dosage: 2000 INTERNATIONAL UNIT, QD
     Route: 042
     Dates: start: 20210106, end: 20210106
  14. ADVATE [Suspect]
     Active Substance: ANTIHEMOPHILIC FACTOR, HUMAN RECOMBINANT
     Dosage: 2000 INTERNATIONAL UNIT, QD
     Route: 042
     Dates: start: 20210106, end: 20210106
  15. ADVATE [Suspect]
     Active Substance: ANTIHEMOPHILIC FACTOR, HUMAN RECOMBINANT
     Dosage: 2000 INTERNATIONAL UNIT, QD
     Route: 042
     Dates: start: 20210106, end: 20210106
  16. ADVATE [Suspect]
     Active Substance: ANTIHEMOPHILIC FACTOR, HUMAN RECOMBINANT
     Dosage: 1000 INTERNATIONAL UNIT, Q8HR
     Route: 042
     Dates: start: 20210107, end: 20210110
  17. ADVATE [Suspect]
     Active Substance: ANTIHEMOPHILIC FACTOR, HUMAN RECOMBINANT
     Dosage: 1000 INTERNATIONAL UNIT, Q8HR
     Route: 042
     Dates: start: 20210107, end: 20210110
  18. ADVATE [Suspect]
     Active Substance: ANTIHEMOPHILIC FACTOR, HUMAN RECOMBINANT
     Dosage: 1000 INTERNATIONAL UNIT, Q8HR
     Route: 042
     Dates: start: 20210107, end: 20210110
  19. ADVATE [Suspect]
     Active Substance: ANTIHEMOPHILIC FACTOR, HUMAN RECOMBINANT
     Dosage: 3000 INTERNATIONAL UNIT, QD
     Route: 042
     Dates: start: 20210107, end: 20210107
  20. ADVATE [Suspect]
     Active Substance: ANTIHEMOPHILIC FACTOR, HUMAN RECOMBINANT
     Dosage: 3000 INTERNATIONAL UNIT, QD
     Route: 042
     Dates: start: 20210107, end: 20210107
  21. ADVATE [Suspect]
     Active Substance: ANTIHEMOPHILIC FACTOR, HUMAN RECOMBINANT
     Dosage: 3000 INTERNATIONAL UNIT, QD
     Route: 042
     Dates: start: 20210107, end: 20210107
  22. ADVATE [Suspect]
     Active Substance: ANTIHEMOPHILIC FACTOR, HUMAN RECOMBINANT
     Dosage: 1000 INTERNATIONAL UNIT, Q12H
     Route: 042
     Dates: start: 20210111, end: 20210116
  23. ADVATE [Suspect]
     Active Substance: ANTIHEMOPHILIC FACTOR, HUMAN RECOMBINANT
     Dosage: 1000 INTERNATIONAL UNIT, Q12H
     Route: 042
     Dates: start: 20210111, end: 20210116
  24. ADVATE [Suspect]
     Active Substance: ANTIHEMOPHILIC FACTOR, HUMAN RECOMBINANT
     Dosage: 1000 INTERNATIONAL UNIT, Q12H
     Route: 042
     Dates: start: 20210111, end: 20210116
  25. ADVATE [Suspect]
     Active Substance: ANTIHEMOPHILIC FACTOR, HUMAN RECOMBINANT
     Dosage: 1000 INTERNATIONAL UNIT, QD
     Route: 042
     Dates: start: 20210117
  26. ADVATE [Suspect]
     Active Substance: ANTIHEMOPHILIC FACTOR, HUMAN RECOMBINANT
     Dosage: 1000 INTERNATIONAL UNIT, QD
     Route: 042
     Dates: start: 20210117
  27. ADVATE [Suspect]
     Active Substance: ANTIHEMOPHILIC FACTOR, HUMAN RECOMBINANT
     Dosage: 1000 INTERNATIONAL UNIT, QD
     Route: 042
     Dates: start: 20210117
  28. NIMESULIDE [Concomitant]
     Active Substance: NIMESULIDE
     Indication: Analgesic therapy
     Dosage: 100 MILLIGRAM, QD
     Route: 048
     Dates: start: 201902

REACTIONS (2)
  - Humerus fracture [Recovering/Resolving]
  - Fall [Unknown]

NARRATIVE: CASE EVENT DATE: 20210102
